FAERS Safety Report 25643926 (Version 1)
Quarter: 2025Q3

REPORT INFORMATION
  Report Type: Spontaneous
  Country: US (occurrence: US)
  Receive Date: 20250805
  Receipt Date: 20250805
  Transmission Date: 20251021
  Serious: Yes (Hospitalization, Other)
  Sender: RANBAXY
  Company Number: US-SUN PHARMACEUTICAL INDUSTRIES INC-2025R1-520825

PATIENT
  Age: 59 Year
  Sex: Male

DRUGS (1)
  1. DOXYCYCLINE [Suspect]
     Active Substance: DOXYCYCLINE
     Indication: Mycoplasma infection
     Route: 065

REACTIONS (4)
  - Thrombocytopenia [Recovered/Resolved]
  - Deep vein thrombosis [Recovered/Resolved]
  - Haemolytic anaemia [Recovered/Resolved]
  - Disseminated intravascular coagulation [Recovered/Resolved]
